FAERS Safety Report 9299570 (Version 1)
Quarter: 2013Q2

REPORT INFORMATION
  Report Type: Spontaneous
  Country: US (occurrence: US)
  Receive Date: 20130521
  Receipt Date: 20130521
  Transmission Date: 20140414
  Serious: No
  Sender: FDA-Public Use
  Company Number: US-BIOGENIDEC-2013BI043026

PATIENT
  Age: 37 Year
  Sex: Female

DRUGS (6)
  1. TYSABRI [Suspect]
     Indication: MULTIPLE SCLEROSIS
     Route: 042
     Dates: start: 20130424
  2. IBUPROFEN [Concomitant]
     Indication: ARTHRALGIA
  3. NUVIGIL [Concomitant]
     Indication: MEMORY IMPAIRMENT
  4. NUVIGIL [Concomitant]
     Indication: COGNITIVE DISORDER
  5. NUVIGIL [Concomitant]
     Indication: SOMNOLENCE
  6. NUVIGIL [Concomitant]
     Indication: ASTHENIA

REACTIONS (1)
  - Drug ineffective [Not Recovered/Not Resolved]
